FAERS Safety Report 10485982 (Version 1)
Quarter: 2014Q3

REPORT INFORMATION
  Report Type: Spontaneous
  Country: US (occurrence: None)
  Receive Date: 20140930
  Receipt Date: 20140930
  Transmission Date: 20150326
  Serious: No
  Sender: FDA-Public Use
  Company Number: None

PATIENT

DRUGS (3)
  1. GOUT CONTROL FORCES OF NATURE [Suspect]
     Active Substance: HOMEOPATHICS
     Indication: GOUT
  2. GOUT CONTROL FORCES OF NATURE [Suspect]
     Active Substance: HOMEOPATHICS
     Indication: SWELLING
  3. GOUT CONTROL FORCES OF NATURE [Suspect]
     Active Substance: HOMEOPATHICS
     Indication: PAIN

REACTIONS (1)
  - Product label confusion [None]
